FAERS Safety Report 18794769 (Version 1)
Quarter: 2021Q1

REPORT INFORMATION
  Report Type: Spontaneous
  Country: PT (occurrence: PT)
  Receive Date: 20210127
  Receipt Date: 20210127
  Transmission Date: 20210419
  Serious: Yes (Hospitalization, Other)
  Sender: FDA-Public Use
  Company Number: PT-AMGEN-PRTSP2021009928

PATIENT
  Age: 53 Year
  Sex: Female

DRUGS (4)
  1. CELECOXIB. [Concomitant]
     Active Substance: CELECOXIB
     Dosage: 100 MILLIGRAM, QD
  2. ADALIMUMAB [Suspect]
     Active Substance: ADALIMUMAB
     Indication: SPONDYLITIS
     Dosage: UNK
     Route: 065
  3. DEFLAZACORT [Concomitant]
     Active Substance: DEFLAZACORT
     Dosage: 15 MILLIGRAM, QD
  4. SULFASALAZINE. [Concomitant]
     Active Substance: SULFASALAZINE
     Dosage: 2 GRAM, QD

REACTIONS (10)
  - Decreased appetite [Unknown]
  - Proteinuria [Unknown]
  - Psoriasis [Unknown]
  - Granulomatosis with polyangiitis [Unknown]
  - Sinusitis [Unknown]
  - Malaise [Unknown]
  - Microcytic anaemia [Recovered/Resolved]
  - Antineutrophil cytoplasmic antibody positive [Unknown]
  - Glomerulonephritis rapidly progressive [Unknown]
  - Tubulointerstitial nephritis [Unknown]
